FAERS Safety Report 21938365 (Version 1)
Quarter: 2023Q1

REPORT INFORMATION
  Report Type: Spontaneous
  Country: JP (occurrence: JP)
  Receive Date: 20230201
  Receipt Date: 20230201
  Transmission Date: 20230417
  Serious: Yes (Death, Hospitalization)
  Sender: FDA-Public Use
  Company Number: JP-BAXTER-2022BAX012186

PATIENT
  Age: 18 Year
  Sex: Female

DRUGS (11)
  1. DEXAMETHASONE [Suspect]
     Active Substance: DEXAMETHASONE
     Indication: Acute lymphocytic leukaemia
     Dosage: CHEMOTHERAPY FROM 9 YEARS OF AGE UNTIL PATIENT WAS 12 YEARS OLD
     Route: 065
  2. MERCAPTOPURINE [Suspect]
     Active Substance: MERCAPTOPURINE
     Indication: Acute lymphocytic leukaemia
     Dosage: CHEMOTHERAPY FROM 10 YEARS OF AGE UNTIL PATIENT WAS 12 YEARS OLD
     Route: 065
  3. PIRARUBICIN [Suspect]
     Active Substance: PIRARUBICIN
     Indication: Acute lymphocytic leukaemia
     Dosage: CHEMOTHERAPY FROM 10 YEARS OF AGE UNTIL PATIENT WAS 12 YEARS OLD
     Route: 065
  4. METHOTREXATE [Suspect]
     Active Substance: METHOTREXATE
     Indication: Acute lymphocytic leukaemia
     Dosage: CHEMOTHERAPY FROM 9 YEARS OF AGE UNTIL PATIENT WAS 12 YEARS OLD
     Route: 037
  5. PREDNISONE [Suspect]
     Active Substance: PREDNISONE
     Indication: Acute lymphocytic leukaemia
     Dosage: CHEMOTHERAPY FROM 9 YEARS OF AGE UNTIL PATIENT WAS 12 YEARS OLD
     Route: 065
  6. LEUCOVORIN [Suspect]
     Active Substance: LEUCOVORIN
     Indication: Acute lymphocytic leukaemia
     Dosage: CHEMOTHERAPY UNTIL PATIENT WAS 12 YEARS OLD
     Route: 065
  7. DAUNORUBICIN HYDROCHLORIDE [Suspect]
     Active Substance: DAUNORUBICIN HYDROCHLORIDE
     Indication: Acute lymphocytic leukaemia
     Dosage: CHEMOTHERAPY FROM 9 YEARS OF AGE UNTIL PATIENT WAS 12 YEARS OLD
     Route: 065
  8. VINCRISTINE [Suspect]
     Active Substance: VINCRISTINE
     Indication: Acute lymphocytic leukaemia
     Dosage: CHEMOTHERAPY FROM 9 YEARS OF AGE UNTIL PATIENT WAS 12 YEARS OLD
     Route: 065
  9. CYCLOPHOSPHAMIDE [Suspect]
     Active Substance: CYCLOPHOSPHAMIDE
     Indication: Acute lymphocytic leukaemia
     Dosage: CHEMOTHERAPY FROM 9 YEARS OF AGE UNTIL PATIENT WAS 12 YEARS OLD
     Route: 065
  10. ASPARAGINASE [Suspect]
     Active Substance: ASPARAGINASE
     Indication: Acute lymphocytic leukaemia
     Dosage: CHEMOTHERAPY FROM 9 YEARS OF AGE UNTIL PATIENT WAS 12 YEARS OLD
     Route: 065
  11. CYTARABINE [Suspect]
     Active Substance: CYTARABINE
     Indication: Acute lymphocytic leukaemia
     Dosage: CHEMOTHERAPY FROM 9 YEARS OF AGE UNTIL PATIENT WAS 12 YEARS OLD
     Route: 065

REACTIONS (3)
  - Pleuroparenchymal fibroelastosis [Fatal]
  - Respiratory failure [Fatal]
  - Interstitial lung disease [Fatal]
